FAERS Safety Report 8043713-5 (Version None)
Quarter: 2012Q1

REPORT INFORMATION
  Report Type: 
  Country: None (occurrence: None)
  Receive Date: 20120113
  Receipt Date: 20120104
  Transmission Date: 20120608
  Serious: Yes (Other)
  Sender: FDA-Public Use
  Company Number: FR-BRISTOL-MYERS SQUIBB COMPANY-16333197

PATIENT
  Age: 12 Year
  Sex: Male

DRUGS (1)
  1. SUSTIVA [Suspect]
     Dosage: SUSTIVA 600 MG, FILM-COATED TABLET (EFAVIRENZ 600 MG TAB INSTEAD OF 200 MG TAB
     Route: 048
     Dates: end: 20111201

REACTIONS (6)
  - ASTHENIA [None]
  - DRUG DISPENSING ERROR [None]
  - OVERDOSE [None]
  - SOMNOLENCE [None]
  - DEPRESSED LEVEL OF CONSCIOUSNESS [None]
  - VOMITING [None]
